FAERS Safety Report 6287373-2 (Version None)
Quarter: 2009Q3

REPORT INFORMATION
  Report Type: 
  Country: None (occurrence: None)
  Receive Date: 20090728
  Receipt Date: 20090720
  Transmission Date: 20100115
  Serious: Yes (Hospitalization)
  Sender: FDA-Public Use
  Company Number: US-ABBOTT-09P-163-0586459-00

PATIENT
  Sex: Male
  Weight: 90.8 kg

DRUGS (13)
  1. NIASPAN [Suspect]
     Indication: POOR PERIPHERAL CIRCULATION
     Route: 048
  2. NIASPAN [Suspect]
     Indication: PAIN IN EXTREMITY
     Route: 048
     Dates: start: 20080101
  3. NIASPAN [Suspect]
     Route: 048
  4. NIASPAN [Suspect]
     Route: 048
  5. LIPITOR [Concomitant]
     Indication: DRUG USE FOR UNKNOWN INDICATION
  6. FLOMAX [Concomitant]
     Indication: DRUG USE FOR UNKNOWN INDICATION
  7. ASCORBIC ACID [Concomitant]
     Indication: DRUG USE FOR UNKNOWN INDICATION
  8. VITAMIN B-12 [Concomitant]
     Indication: DRUG USE FOR UNKNOWN INDICATION
  9. MDR FITNESS VITAMINS [Concomitant]
     Indication: DRUG USE FOR UNKNOWN INDICATION
  10. TRICOR [Concomitant]
     Indication: DRUG USE FOR UNKNOWN INDICATION
     Route: 048
  11. RED YEAST RICE [Concomitant]
     Indication: DRUG USE FOR UNKNOWN INDICATION
     Route: 048
     Dates: start: 20090701
  12. TYLENOL [Concomitant]
     Indication: DRUG USE FOR UNKNOWN INDICATION
     Dosage: AS NEEDED FOR BAD BACK PAIN, TAKES 4 TO 6 PILLS
     Route: 048
  13. ASPIRIN [Concomitant]
     Indication: DRUG USE FOR UNKNOWN INDICATION
     Route: 048
     Dates: end: 20090718

REACTIONS (11)
  - ARRHYTHMIA [None]
  - ASTHENIA [None]
  - BLOOD COUNT ABNORMAL [None]
  - CHILLS [None]
  - DEHYDRATION [None]
  - FLUSHING [None]
  - LOSS OF CONSCIOUSNESS [None]
  - MALNUTRITION [None]
  - NIGHT SWEATS [None]
  - PNEUMONIA [None]
  - WEIGHT DECREASED [None]
